FAERS Safety Report 10078285 (Version 2)
Quarter: 2014Q2

REPORT INFORMATION
  Report Type: Spontaneous
  Country: AU (occurrence: AU)
  Receive Date: 20140415
  Receipt Date: 20140429
  Transmission Date: 20141212
  Serious: Yes (Other)
  Sender: FDA-Public Use
  Company Number: AU-RANBAXY-2014RR-80192

PATIENT
  Age: 12 Day
  Sex: Male

DRUGS (5)
  1. CODEINE [Suspect]
     Indication: PRODUCT USED FOR UNKNOWN INDICATION
     Dosage: 21 MG DAILY
     Route: 048
     Dates: start: 20010613, end: 20010613
  2. MIDAZOLAM [Suspect]
     Indication: PRODUCT USED FOR UNKNOWN INDICATION
     Dosage: 1.7 MG, 1 TIME
     Route: 048
     Dates: start: 20010613, end: 20010613
  3. FRUSEMIDE [Concomitant]
     Indication: PRODUCT USED FOR UNKNOWN INDICATION
     Dosage: 12 MG, DAILY
     Route: 042
     Dates: start: 20010613, end: 20010613
  4. PARACETAMOL [Concomitant]
     Indication: PRODUCT USED FOR UNKNOWN INDICATION
     Dosage: 300 MG, DAILY
     Dates: start: 20010612
  5. SPIRONOLACTONE [Concomitant]
     Indication: PRODUCT USED FOR UNKNOWN INDICATION
     Dosage: 12.5 MG, DAILY
     Route: 065
     Dates: start: 20010612, end: 20010614

REACTIONS (3)
  - Respiratory depression [Recovered/Resolved]
  - Consciousness fluctuating [Recovered/Resolved]
  - Apnoea neonatal [Recovered/Resolved]
